FAERS Safety Report 13202054 (Version 1)
Quarter: 2017Q1

REPORT INFORMATION
  Report Type: Spontaneous
  Country: US (occurrence: US)
  Receive Date: 20170208
  Receipt Date: 20170208
  Transmission Date: 20170428
  Serious: No
  Sender: FDA-Public Use
  Company Number: US-AMGEN-USASP2016073495

PATIENT
  Age: 42 Year
  Sex: Female

DRUGS (1)
  1. NEULASTA [Suspect]
     Active Substance: PEGFILGRASTIM
     Indication: LYMPHOMA
     Dosage: UNK
     Route: 065

REACTIONS (5)
  - Pelvic pain [Recovered/Resolved]
  - Bone pain [Recovering/Resolving]
  - Injection site mass [Unknown]
  - Spinal pain [Recovering/Resolving]
  - Back pain [Recovering/Resolving]
